FAERS Safety Report 18344264 (Version 2)
Quarter: 2020Q4

REPORT INFORMATION
  Report Type: Spontaneous
  Country: FR (occurrence: FR)
  Receive Date: 20201005
  Receipt Date: 20201228
  Transmission Date: 20210114
  Serious: Yes (Hospitalization, Other)
  Sender: FDA-Public Use
  Company Number: NVSC2020FR263791

PATIENT
  Age: 90 Year
  Sex: Male
  Weight: 67 kg

DRUGS (20)
  1. DIFFU-K [Suspect]
     Active Substance: POTASSIUM CHLORIDE
     Indication: PRODUCT USED FOR UNKNOWN INDICATION
     Dosage: 1800 MG, QD
     Route: 048
     Dates: start: 20170818
  2. PRAVASTATIN. [Suspect]
     Active Substance: PRAVASTATIN
     Indication: DYSLIPIDAEMIA
     Dosage: 10 MG, QD
     Route: 048
     Dates: start: 20170729
  3. WARFARIN SODIUM. [Suspect]
     Active Substance: WARFARIN SODIUM
     Indication: PRODUCT USED FOR UNKNOWN INDICATION
     Dosage: 4 MG, QD
     Route: 048
     Dates: start: 20170803, end: 20170806
  4. WARFARIN SODIUM. [Suspect]
     Active Substance: WARFARIN SODIUM
     Dosage: 4 MG, QD
     Route: 048
     Dates: start: 20170819
  5. SYMBICORT [Suspect]
     Active Substance: BUDESONIDE\FORMOTEROL FUMARATE DIHYDRATE
     Indication: PRODUCT USED FOR UNKNOWN INDICATION
     Dosage: UNK
     Route: 048
     Dates: start: 20170729
  6. AMIODARONE [Suspect]
     Active Substance: AMIODARONE
     Indication: ARRHYTHMIA PROPHYLAXIS
     Dosage: 200 MG, QD
     Route: 048
     Dates: start: 20170731
  7. FUROSEMID [Suspect]
     Active Substance: FUROSEMIDE
     Indication: DIURETIC THERAPY
     Dosage: 20 MG, QD
     Route: 048
     Dates: start: 20170730, end: 20170731
  8. PARACETAMOL [Suspect]
     Active Substance: ACETAMINOPHEN
     Dosage: 2000 MG, QD
     Route: 048
     Dates: start: 20170812, end: 20170802
  9. ALPRAZOLAM. [Suspect]
     Active Substance: ALPRAZOLAM
     Indication: PRODUCT USED FOR UNKNOWN INDICATION
     Dosage: 1 MG, QD
     Route: 048
     Dates: start: 20170731, end: 20170731
  10. ALPRAZOLAM. [Suspect]
     Active Substance: ALPRAZOLAM
     Dosage: 0.5 MG, QD
     Route: 065
     Dates: start: 20170809, end: 20170810
  11. APIXABAN [Suspect]
     Active Substance: APIXABAN
     Indication: PRODUCT USED FOR UNKNOWN INDICATION
     Dosage: UNK
     Route: 065
  12. TRAMADOL. [Suspect]
     Active Substance: TRAMADOL
     Dosage: 50 MG, QD
     Route: 048
     Dates: start: 20170820, end: 20170821
  13. PARACETAMOL [Suspect]
     Active Substance: ACETAMINOPHEN
     Indication: ANALGESIC THERAPY
     Dosage: 2000 MG, DAILY
     Route: 048
     Dates: start: 20170801, end: 20170802
  14. ALPRAZOLAM. [Suspect]
     Active Substance: ALPRAZOLAM
     Dosage: 0.13 MG, QD (0.125 MG QD
     Route: 065
     Dates: start: 20170808, end: 20170808
  15. FUROSEMID [Suspect]
     Active Substance: FUROSEMIDE
     Dosage: 20 MG, QD
     Route: 048
     Dates: start: 20170802
  16. TAMSULOSIN [Suspect]
     Active Substance: TAMSULOSIN
     Indication: PRODUCT USED FOR UNKNOWN INDICATION
     Dosage: 0.4 MG, QD
     Route: 048
     Dates: start: 20170730
  17. TRAMADOL. [Suspect]
     Active Substance: TRAMADOL
     Indication: ANTIINFLAMMATORY THERAPY
     Dosage: 50 MG, QD
     Route: 048
     Dates: start: 20170816, end: 20170816
  18. PANTOPRAZOLE [Suspect]
     Active Substance: PANTOPRAZOLE
     Indication: GASTROOESOPHAGEAL REFLUX PROPHYLAXIS
     Dosage: 40 MG, QD
     Route: 048
     Dates: start: 20170806
  19. ACETYLSALICYLIC ACID [Concomitant]
     Active Substance: ASPIRIN
     Indication: PRODUCT USED FOR UNKNOWN INDICATION
     Dosage: 75 MG, QD (USED AS ANTI-PLATELET AGGREGANT)
     Route: 048
     Dates: start: 20170801
  20. SPASFON [Concomitant]
     Indication: PROPHYLAXIS
     Dosage: 480 MG, QD
     Route: 048
     Dates: start: 20170805

REACTIONS (5)
  - Rectal haemorrhage [Recovered/Resolved]
  - Puncture site haematoma [Recovered/Resolved]
  - Arteriovenous fistula [Recovered/Resolved]
  - Femoral artery aneurysm [Recovered/Resolved]
  - Atrioventricular block [Recovered/Resolved]

NARRATIVE: CASE EVENT DATE: 20170803
